FAERS Safety Report 15734796 (Version 1)
Quarter: 2018Q4

REPORT INFORMATION
  Report Type: Spontaneous
  Country: CA (occurrence: CA)
  Receive Date: 20181218
  Receipt Date: 20181218
  Transmission Date: 20190205
  Serious: Yes (Hospitalization)
  Sender: FDA-Public Use
  Company Number: PHHY2018CA187979

PATIENT
  Age: 51 Year
  Sex: Male
  Weight: 81 kg

DRUGS (1)
  1. PMS-CARBAMAZEPINE-CR [Suspect]
     Active Substance: CARBAMAZEPINE
     Indication: TRIGEMINAL NEURALGIA
     Dosage: 200 MG, BID
     Route: 048

REACTIONS (6)
  - Fall [Recovered/Resolved]
  - Fatigue [Recovered/Resolved]
  - Metabolic encephalopathy [Recovered/Resolved]
  - Speech disorder [Recovered/Resolved]
  - Asthenia [Recovered/Resolved]
  - Mental impairment [Recovered/Resolved]
